FAERS Safety Report 18208888 (Version 2)
Quarter: 2020Q4

REPORT INFORMATION
  Report Type: Spontaneous
  Country: GB (occurrence: GB)
  Receive Date: 20200828
  Receipt Date: 20201009
  Transmission Date: 20210113
  Serious: Yes (Other)
  Sender: FDA-Public Use
  Company Number: GB-PFIZER INC-2020334611

PATIENT
  Age: 46 Year
  Sex: Male
  Weight: 97 kg

DRUGS (1)
  1. CHAMPIX [Suspect]
     Active Substance: VARENICLINE TARTRATE
     Dosage: 1 MG, 2X/DAY
     Dates: end: 20200724

REACTIONS (2)
  - Abnormal dreams [Recovered/Resolved]
  - Physical assault [Recovered/Resolved]

NARRATIVE: CASE EVENT DATE: 20200723
